FAERS Safety Report 17582265 (Version 2)
Quarter: 2020Q4

REPORT INFORMATION
  Report Type: Report from Study
  Country: ES (occurrence: ES)
  Receive Date: 20200325
  Receipt Date: 20201029
  Transmission Date: 20210113
  Serious: Yes (Other)
  Sender: FDA-Public Use
  Company Number: ES-BAYER-2020-048720

PATIENT
  Age: 43 Year
  Sex: Female

DRUGS (2)
  1. MIRENA [Suspect]
     Active Substance: LEVONORGESTREL
     Indication: CONTRACEPTION
     Dosage: 20  ?G PER DAY CON
     Route: 015
     Dates: start: 2013, end: 20200309
  2. MIRENA [Suspect]
     Active Substance: LEVONORGESTREL
     Indication: CONTRACEPTION
     Dosage: 20  ?G PER DAY CONT
     Route: 015
     Dates: start: 20200309, end: 20200309

REACTIONS (6)
  - Device breakage [None]
  - Complication of device insertion [None]
  - Wrong technique in device usage process [None]
  - Device difficult to use [None]
  - Device use issue [Recovered/Resolved]
  - Device deployment issue [None]

NARRATIVE: CASE EVENT DATE: 20200309
